FAERS Safety Report 5766898-X (Version None)
Quarter: 2008Q2

REPORT INFORMATION
  Report Type: 
  Country: None (occurrence: None)
  Receive Date: 20080609
  Receipt Date: 20080605
  Transmission Date: 20081010
  Serious: Yes (Death, Life-Threatening)
  Sender: FDA-Public Use
  Company Number: 2008SP010928

PATIENT
  Age: 43 Year
  Sex: Female
  Weight: 43 kg

DRUGS (15)
  1. TEMODAL [Suspect]
     Indication: GLIOBLASTOMA MULTIFORME
     Dosage: 150 MG/M2; QD; PO; 150 MG/M2; QD; PO; 150 MG/M2; QD; PO
     Route: 048
     Dates: start: 20061129, end: 20061203
  2. TEMODAL [Suspect]
     Indication: GLIOBLASTOMA MULTIFORME
     Dosage: 150 MG/M2; QD; PO; 150 MG/M2; QD; PO; 150 MG/M2; QD; PO
     Route: 048
     Dates: start: 20061227, end: 20070101
  3. TEMODAL [Suspect]
     Indication: GLIOBLASTOMA MULTIFORME
     Dosage: 150 MG/M2; QD; PO; 150 MG/M2; QD; PO; 150 MG/M2; QD; PO
     Route: 048
     Dates: start: 20070130, end: 20070203
  4. ZOFRAN (CON.) [Concomitant]
  5. LOXONIN (CON.) [Concomitant]
  6. POSTERISAN FORTE (CON.) [Concomitant]
  7. DEPAKENE (CON.) [Concomitant]
  8. PREDNISOLONE (CON.) [Concomitant]
  9. MUCOSTA (CON.) [Concomitant]
  10. MEVALOTIN (CON.) [Concomitant]
  11. MANNITOL (CON.) [Concomitant]
  12. GLYCEOL (CON.) [Concomitant]
  13. RINDERON (CON.) [Concomitant]
  14. STRONGER NEO MINOPHAGEN C (CON.) [Concomitant]
  15. ALEVIATIN (CON.) [Concomitant]

REACTIONS (8)
  - BONE MARROW FAILURE [None]
  - DISEASE PROGRESSION [None]
  - EXTRADURAL ABSCESS [None]
  - HYDROCEPHALUS [None]
  - INTRACRANIAL HYPOTENSION [None]
  - METABOLIC ACIDOSIS [None]
  - PANCYTOPENIA [None]
  - WOUND INFECTION [None]
